FAERS Safety Report 4320928-0 (Version None)
Quarter: 2004Q1

REPORT INFORMATION
  Report Type: 
  Country: None (occurrence: None)
  Receive Date: 20040318
  Receipt Date: 20040304
  Transmission Date: 20041129
  Serious: Yes (Death)
  Sender: FDA-Public Use
  Company Number: 205119

PATIENT
  Age: 75 Year
  Sex: Female

DRUGS (7)
  1. RITUXAN [Suspect]
     Indication: DIFFUSE LARGE B-CELL LYMPHOMA
     Dosage: INTRAVENOUS
     Route: 042
     Dates: start: 20031001, end: 20040112
  2. CYCLOPHOSPHAMIDE [Suspect]
     Indication: DIFFUSE LARGE B-CELL LYMPHOMA
     Dates: start: 20031001, end: 20040112
  3. DOXORUBICIN HCL [Suspect]
     Indication: DIFFUSE LARGE B-CELL LYMPHOMA
     Dates: start: 20031001, end: 20040112
  4. VINCRISTINE [Suspect]
     Indication: DIFFUSE LARGE B-CELL LYMPHOMA
     Dates: start: 20301001, end: 20041112
  5. PREDNISONE [Suspect]
     Indication: DIFFUSE LARGE B-CELL LYMPHOMA
     Dates: start: 20031001, end: 20040112
  6. DARBEPOETIN ALFA [Concomitant]
  7. LOW MOLECULAR WEIGHT HEPARIN [Concomitant]

REACTIONS (13)
  - ATRIAL FIBRILLATION [None]
  - CARDIO-RESPIRATORY ARREST [None]
  - DEHYDRATION [None]
  - DEPRESSION [None]
  - ELECTROLYTE IMBALANCE [None]
  - FAILURE TO THRIVE [None]
  - FEBRILE NEUTROPENIA [None]
  - HAEMOGLOBIN DECREASED [None]
  - NAUSEA [None]
  - PERFORMANCE STATUS DECREASED [None]
  - PULMONARY EMBOLISM [None]
  - RESPIRATORY ALKALOSIS [None]
  - VOMITING [None]
